FAERS Safety Report 6653487-8 (Version None)
Quarter: 2010Q1

REPORT INFORMATION
  Report Type: 
  Country: None (occurrence: None)
  Receive Date: 20100326
  Receipt Date: 20100317
  Transmission Date: 20100710
  Serious: Yes (Hospitalization, Other)
  Sender: FDA-Public Use
  Company Number: FR-JNJFOC-20100304860

PATIENT
  Sex: Female

DRUGS (7)
  1. RISPERDAL [Suspect]
     Indication: PSYCHOTIC DISORDER
     Route: 048
  2. RISPERDAL [Suspect]
     Route: 048
  3. RISPERDAL [Suspect]
     Indication: DEPRESSION
     Route: 048
  4. RISPERDAL [Suspect]
     Route: 048
  5. LARGACTIL [Suspect]
     Indication: DRUG USE FOR UNKNOWN INDICATION
     Route: 050
  6. DEROXAT [Concomitant]
     Route: 065
  7. XANAX [Concomitant]
     Route: 065

REACTIONS (4)
  - DEPRESSION [None]
  - ENCEPHALITIS [None]
  - NEUROLEPTIC MALIGNANT SYNDROME [None]
  - SUICIDAL IDEATION [None]
